FAERS Safety Report 5682249-3 (Version None)
Quarter: 2008Q1

REPORT INFORMATION
  Report Type: 
  Country: None (occurrence: None)
  Receive Date: 20080326
  Receipt Date: 20080326
  Transmission Date: 20080703
  Serious: No
  Sender: FDA-Public Use
  Company Number: None

PATIENT
  Age: 39 Year
  Sex: Male
  Weight: 99.7913 kg

DRUGS (6)
  1. PRAVACHOL [Suspect]
     Indication: HYPERLIPIDAEMIA
     Dosage: 40MG ONE DAILY ORAL
     Route: 048
     Dates: start: 20061211
  2. COMBIVIR [Concomitant]
  3. ZIAGEN [Concomitant]
  4. VALTREX [Concomitant]
  5. KALETRA [Concomitant]
  6. LIPITOR [Concomitant]

REACTIONS (1)
  - SEMEN VOLUME DECREASED [None]
